FAERS Safety Report 17217325 (Version 2)
Quarter: 2020Q2

REPORT INFORMATION
  Report Type: Spontaneous
  Country: NO (occurrence: NO)
  Receive Date: 20191231
  Receipt Date: 20200410
  Transmission Date: 20200713
  Serious: Yes (Death)
  Sender: FDA-Public Use
  Company Number: NO-TEVA-2019-NO-1159797

PATIENT
  Age: 33 Year
  Sex: Male

DRUGS (12)
  1. STESOLID [Suspect]
     Active Substance: DIAZEPAM
     Dosage: INCREASED DOSE, AS NEEDED
     Dates: start: 201012
  2. KETAMINE HCL [Suspect]
     Active Substance: KETAMINE HYDROCHLORIDE
     Indication: PAIN
     Dosage: UNK UNK, AS NEEDED
     Dates: start: 20101118
  3. KETORAX [Suspect]
     Active Substance: KETOBEMIDONE HYDROCHLORIDE
     Indication: PAIN
     Dosage: UNK UNK, AS NEEDED
     Dates: start: 2011
  4. VIVAL [Suspect]
     Active Substance: DIAZEPAM
     Indication: STRESS
     Dosage: UNK
     Route: 065
  5. MIDAZOLAM. [Suspect]
     Active Substance: MIDAZOLAM
     Indication: PAIN
     Dosage: DOSE INCREASING, AS NEEDED
     Dates: start: 201101
  6. STESOLID [Suspect]
     Active Substance: DIAZEPAM
     Indication: PAIN
     Dosage: UNK
     Dates: start: 20101118
  7. KETAMINE HCL [Suspect]
     Active Substance: KETAMINE HYDROCHLORIDE
     Dosage: INCREASED DOSE AS NEEDED
     Dates: start: 201012
  8. LIDOCAINE HCL [Suspect]
     Active Substance: LIDOCAINE HYDROCHLORIDE
     Indication: PAIN
     Dosage: UNK UNK, AS NEEDED
     Dates: start: 20101118
  9. LIDOCAINE HCL [Suspect]
     Active Substance: LIDOCAINE HYDROCHLORIDE
     Dosage: INCREASED DOSE AS NEEDED
     Dates: start: 201012
  10. METHADONE [Suspect]
     Active Substance: METHADONE HYDROCHLORIDE
     Indication: DRUG DEPENDENCE
     Dosage: UNK
     Route: 065
  11. MORPHINE [Suspect]
     Active Substance: MORPHINE
     Indication: PAIN
     Dosage: UNK
  12. LYRICA [Suspect]
     Active Substance: PREGABALIN
     Indication: PAIN
     Dosage: UNK
     Route: 065

REACTIONS (10)
  - Drug dependence [Fatal]
  - Decreased appetite [Unknown]
  - Somatic symptom disorder [Unknown]
  - Toxicity to various agents [Fatal]
  - Weight decreased [Unknown]
  - Product use in unapproved indication [Unknown]
  - Loss of personal independence in daily activities [Unknown]
  - Off label use [Unknown]
  - Sleep disorder [Unknown]
  - Drug ineffective [Fatal]

NARRATIVE: CASE EVENT DATE: 20101118
